FAERS Safety Report 22003966 (Version 2)
Quarter: 2023Q1

REPORT INFORMATION
  Report Type: Spontaneous
  Country: US (occurrence: US)
  Receive Date: 20230217
  Receipt Date: 20230222
  Transmission Date: 20230418
  Serious: Yes (Other)
  Sender: FDA-Public Use
  Company Number: US-002147023-NVSC2023US031819

PATIENT
  Age: 3 Year
  Sex: Female

DRUGS (1)
  1. ZOLGENSMA [Suspect]
     Active Substance: ONASEMNOGENE ABEPARVOVEC-XIOI
     Indication: Product used for unknown indication
     Dosage: UNK, ONCE/SINGLE
     Route: 042
     Dates: start: 201908

REACTIONS (3)
  - Coronavirus infection [Unknown]
  - Pneumonia bacterial [Unknown]
  - Pyrexia [Unknown]

NARRATIVE: CASE EVENT DATE: 20230206
